FAERS Safety Report 5174395-8 (Version None)
Quarter: 2006Q4

REPORT INFORMATION
  Report Type: 
  Country: None (occurrence: None)
  Receive Date: 20061214
  Receipt Date: 20061206
  Transmission Date: 20070319
  Serious: Yes (Other)
  Sender: FDA-Public Use
  Company Number: US-ELI_LILLY_AND_COMPANY-US200612001070

PATIENT
  Age: 9 Year
  Sex: Female

DRUGS (2)
  1. HUMATROPE [Suspect]
     Indication: GROWTH RETARDATION
     Dosage: 9 CLICKS OF A 12MG CARTRIDGE
     Dates: start: 20051123
  2. HUMATROPE [Suspect]
     Dosage: 1 MG, UNK
     Dates: start: 20061101

REACTIONS (7)
  - DEAFNESS NEUROSENSORY [None]
  - ENDOLYMPHATIC HYDROPS [None]
  - HYPOACUSIS [None]
  - NAUSEA [None]
  - PYREXIA [None]
  - VERTIGO [None]
  - VESTIBULAR DISORDER [None]
